FAERS Safety Report 21920169 (Version 1)
Quarter: 2023Q1

REPORT INFORMATION
  Report Type: Spontaneous
  Country: ES (occurrence: ES)
  Receive Date: 20230127
  Receipt Date: 20230127
  Transmission Date: 20230418
  Serious: Yes (Hospitalization)
  Sender: FDA-Public Use
  Company Number: None

PATIENT
  Age: 73 Year
  Sex: Female

DRUGS (4)
  1. ESCITALOPRAM [Suspect]
     Active Substance: ESCITALOPRAM OXALATE
     Indication: Depression
     Dosage: 10.0 MG DE 2858A)
     Dates: start: 20220728, end: 20220807
  2. TRYPTIZOL [Concomitant]
     Active Substance: AMITRIPTYLINE HYDROCHLORIDE
     Indication: Headache
     Dosage: 10.0 MG CE ,24 TABLETS
     Dates: start: 20220709
  3. LORAZEPAM [Concomitant]
     Active Substance: LORAZEPAM
     Indication: Persistent depressive disorder
     Dosage: 2.0 MG C/24 H NOC , 30 TABLETS
     Dates: start: 20211117
  4. ACETYLSALICYLIC ACID KERN PHARMA [Concomitant]
     Indication: Cerebrovascular disorder
     Dosage: 100.0 MG DE ,EFG, 30 TABLETS
     Dates: start: 20121220

REACTIONS (1)
  - Pancreatitis acute [Recovered/Resolved]

NARRATIVE: CASE EVENT DATE: 20220807
